FAERS Safety Report 4830901-1 (Version None)
Quarter: 2005Q4

REPORT INFORMATION
  Report Type: 
  Country: None (occurrence: None)
  Receive Date: 20051114
  Receipt Date: 20051028
  Transmission Date: 20060501
  Serious: Yes (Other)
  Sender: FDA-Public Use
  Company Number: TNZIE200500101

PATIENT
  Age: 35 Year
  Sex: Male

DRUGS (2)
  1. INNOHEP [Suspect]
     Indication: THROMBOSIS PROPHYLAXIS
     Dosage: 175 IU/KG (175 IU/KG, ONCE DAILY), SUBCUTANEOUS
     Route: 058
  2. METHADONE HCL [Concomitant]

REACTIONS (2)
  - OSTEOMYELITIS [None]
  - OSTEOPOROSIS [None]
